FAERS Safety Report 15208900 (Version 1)
Quarter: 2018Q3

REPORT INFORMATION
  Report Type: Spontaneous
  Country: US (occurrence: US)
  Receive Date: 20180629
  Receipt Date: 20180629
  Transmission Date: 20181010
  Serious: Yes (Hospitalization)
  Sender: FDA-Public Use
  Company Number: None

PATIENT
  Age: 70 Year
  Sex: Female

DRUGS (14)
  1. CARBAMAZEPIN [Concomitant]
     Active Substance: CARBAMAZEPINE
  2. CYMBALTA [Concomitant]
     Active Substance: DULOXETINE HYDROCHLORIDE
  3. VITAMIN D3 [Concomitant]
     Active Substance: CHOLECALCIFEROL
  4. BACLOFEN. [Concomitant]
     Active Substance: BACLOFEN
  5. DICLOFENAC [Concomitant]
     Active Substance: DICLOFENAC
  6. FENOFIBRATE. [Concomitant]
     Active Substance: FENOFIBRATE
  7. ISOSORB MONO [Concomitant]
     Active Substance: ISOSORBIDE MONONITRATE
  8. REBIF [Suspect]
     Active Substance: INTERFERON BETA-1A
     Indication: MULTIPLE SCLEROSIS
     Dates: start: 20180331
  9. ATORVASTATIN [Concomitant]
     Active Substance: ATORVASTATIN
  10. LISINOPRIL. [Concomitant]
     Active Substance: LISINOPRIL
  11. GLIPIZIDE. [Concomitant]
     Active Substance: GLIPIZIDE
  12. CLOPIDOGREL [Concomitant]
     Active Substance: CLOPIDOGREL BISULFATE
  13. VICTOZA [Concomitant]
     Active Substance: LIRAGLUTIDE
  14. METOPROLOL TARTRATE. [Concomitant]
     Active Substance: METOPROLOL TARTRATE

REACTIONS (5)
  - Transient ischaemic attack [None]
  - Seizure [None]
  - Aggression [None]
  - Suicidal ideation [None]
  - Headache [None]

NARRATIVE: CASE EVENT DATE: 20180601
